FAERS Safety Report 9016885 (Version 1)
Quarter: 2013Q1

REPORT INFORMATION
  Report Type: Spontaneous
  Country: US (occurrence: None)
  Receive Date: 20130116
  Receipt Date: 20130116
  Transmission Date: 20140127
  Serious: No
  Sender: FDA-Public Use
  Company Number: US-HORIZON-DUE-0009-2012

PATIENT
  Age: 47 Year
  Sex: Female
  Weight: 102 kg

DRUGS (5)
  1. DUEXIS [Suspect]
     Indication: ARTHRALGIA
     Dosage: 1 DF, ORAL
     Route: 048
     Dates: start: 20120625, end: 20120704
  2. BUSPAR [Concomitant]
  3. LEXAPRO [Concomitant]
  4. INTROVALE [Concomitant]
  5. NUCYNTA [Concomitant]

REACTIONS (2)
  - Arthralgia [None]
  - Joint range of motion decreased [None]
